FAERS Safety Report 8054581-X (Version None)
Quarter: 2012Q1

REPORT INFORMATION
  Report Type: 
  Country: None (occurrence: None)
  Receive Date: 20120119
  Receipt Date: 20120109
  Transmission Date: 20120608
  Serious: Yes (Hospitalization)
  Sender: FDA-Public Use
  Company Number: US-BIOGENIDEC-2011BI046775

PATIENT
  Age: 49 Year
  Sex: Male

DRUGS (1)
  1. AVONEX [Suspect]
     Indication: MULTIPLE SCLEROSIS
     Route: 030
     Dates: start: 20110402

REACTIONS (5)
  - PNEUMONIA [None]
  - MUSCLE CONTRACTURE [None]
  - BLOOD ALBUMIN DECREASED [None]
  - BLOOD GLUCOSE INCREASED [None]
  - BLOOD CREATININE DECREASED [None]
